FAERS Safety Report 6663375-9 (Version None)
Quarter: 2010Q1

REPORT INFORMATION
  Report Type: 
  Country: None (occurrence: None)
  Receive Date: 20100330
  Receipt Date: 20100330
  Transmission Date: 20100710
  Serious: Yes (Life-Threatening, Hospitalization)
  Sender: FDA-Public Use
  Company Number: None

PATIENT
  Age: 75 Month
  Sex: Male
  Weight: 83.9154 kg

DRUGS (1)
  1. SLO NIACIN 500 MG UPSHER-SMITH [Suspect]
     Indication: HIGH DENSITY LIPOPROTEIN DECREASED
     Dosage: ONE ONE PER DAY PO
     Route: 048
     Dates: start: 20100316, end: 20100316

REACTIONS (3)
  - FLUSHING [None]
  - LOSS OF CONSCIOUSNESS [None]
  - ROAD TRAFFIC ACCIDENT [None]
